FAERS Safety Report 25468476 (Version 1)
Quarter: 2025Q2

REPORT INFORMATION
  Report Type: Spontaneous
  Country: ES (occurrence: ES)
  Receive Date: 20250623
  Receipt Date: 20250623
  Transmission Date: 20250717
  Serious: Yes (Other)
  Sender: BOEHRINGER INGELHEIM
  Company Number: None

PATIENT
  Age: 68 Year
  Sex: Female

DRUGS (11)
  1. JARDIANCE [Suspect]
     Active Substance: EMPAGLIFLOZIN
     Indication: Diabetes mellitus
     Dosage: IN THE MORNING
     Route: 048
     Dates: start: 20230401, end: 20250508
  2. OMEPRAZOL ABDRUG 20 MG CAPSULAS DURAS GASTRORRESISTENTES EFG , 14 c?ps [Concomitant]
     Indication: Product used for unknown indication
  3. URSOBILANE 300 mg CAPSULAS, 60 c?psulas [Concomitant]
     Indication: Product used for unknown indication
  4. EDOXABAN TOSYLATE [Concomitant]
     Active Substance: EDOXABAN TOSYLATE
     Indication: Product used for unknown indication
  5. ESPIRONOLACTONA ALTER 100 mg COMPRIMIDOS RECUBIERTOS CON PELICULA EFG, [Concomitant]
     Indication: Product used for unknown indication
  6. BISOPROLOL AUROVITAS 5 MG COMPRIMIDOS RECUBIERTOS CON PELICULA EFG, 28 [Concomitant]
     Indication: Product used for unknown indication
  7. RESINCOLESTIRAMINA 4 g POLVO PARA SUSPENSION ORAL , 50 sobres [Concomitant]
     Indication: Product used for unknown indication
  8. EUTIROX 112 microgramos COMPRIMIDOS , 100 comprimidos [Concomitant]
     Indication: Product used for unknown indication
  9. ALOPURINOL AUROVITAS 100 MG COMPRIMIDOS EFG, 100 comprimidos [Concomitant]
     Indication: Product used for unknown indication
  10. RESINCALCIO POLVO PARA SUSPENSION ORAL, 26 sobres [Concomitant]
     Indication: Product used for unknown indication
  11. RAMIPRIL ARISTOGEN 5 MG COMPRIMIDOS EFG, 28 comprimidos [Concomitant]
     Indication: Product used for unknown indication

REACTIONS (2)
  - Vulvovaginal ulceration [Recovered/Resolved]
  - Nasal mucosal ulcer [Recovered/Resolved]

NARRATIVE: CASE EVENT DATE: 20240201
